FAERS Safety Report 7284757-0 (Version None)
Quarter: 2011Q1

REPORT INFORMATION
  Report Type: 
  Country: None (occurrence: None)
  Receive Date: 20110210
  Receipt Date: 20110201
  Transmission Date: 20110831
  Serious: Yes (Hospitalization)
  Sender: FDA-Public Use
  Company Number: DE-AMGEN-DEUCT2011007256

PATIENT
  Age: 55 Year
  Sex: Female

DRUGS (4)
  1. ETANERCEPT [Suspect]
     Indication: RHEUMATOID ARTHRITIS
     Dosage: 25 MG, UNK
     Dates: start: 20050401, end: 20060501
  2. ETANERCEPT [Suspect]
     Dosage: 25 UNK, UNK
     Dates: start: 20070301, end: 20100401
  3. ETANERCEPT [Suspect]
     Dosage: 25 UNK, UNK
     Dates: start: 20100701
  4. METHOTREXATE SODIUM [Suspect]
     Dosage: 10 MG, UNK

REACTIONS (3)
  - FOOT OPERATION [None]
  - CELLULITIS [None]
  - URINARY TRACT INFECTION [None]
